FAERS Safety Report 10400778 (Version 1)
Quarter: 2014Q3

REPORT INFORMATION
  Report Type: Spontaneous
  Country: US (occurrence: US)
  Receive Date: 20140821
  Receipt Date: 20140821
  Transmission Date: 20150326
  Serious: No
  Sender: FDA-Public Use
  Company Number: US-ASTRAZENECA-2014SE26467

PATIENT
  Age: 951 Month
  Sex: Female
  Weight: 40.4 kg

DRUGS (2)
  1. SYMBICORT [Suspect]
     Active Substance: BUDESONIDE\FORMOTEROL FUMARATE DIHYDRATE
     Indication: CHRONIC OBSTRUCTIVE PULMONARY DISEASE
     Dosage: TWO PUFFS, TWO TIMES A DAY
     Route: 055
     Dates: end: 201404
  2. XOPENEX [Concomitant]
     Active Substance: LEVALBUTEROL HYDROCHLORIDE
     Indication: RESPIRATORY THERAPY
     Dosage: TWICE IN FIVE DAYS
     Route: 055

REACTIONS (6)
  - Nausea [Recovering/Resolving]
  - Drug hypersensitivity [Recovered/Resolved]
  - Feeling abnormal [Recovering/Resolving]
  - Dizziness [Recovering/Resolving]
  - Vertigo [Recovering/Resolving]
  - Intentional product misuse [Recovered/Resolved]

NARRATIVE: CASE EVENT DATE: 201404
